FAERS Safety Report 7098278-1 (Version None)
Quarter: 2010Q4

REPORT INFORMATION
  Report Type: 
  Country: None (occurrence: None)
  Receive Date: 20101112
  Receipt Date: 20100715
  Transmission Date: 20110411
  Serious: No
  Sender: FDA-Public Use
  Company Number: A0873017A

PATIENT
  Sex: Female

DRUGS (1)
  1. TREXIMET [Suspect]

REACTIONS (1)
  - ARRHYTHMIA [None]
